FAERS Safety Report 21191928 (Version 1)
Quarter: 2022Q3

REPORT INFORMATION
  Report Type: Spontaneous
  Country: CN (occurrence: CN)
  Receive Date: 20220809
  Receipt Date: 20220809
  Transmission Date: 20221026
  Serious: Yes (Other)
  Sender: FDA-Public Use
  Company Number: CN-BAYER-2022A109095

PATIENT
  Age: 51 Year
  Sex: Male
  Weight: 56 kg

DRUGS (2)
  1. STIVARGA [Suspect]
     Active Substance: REGORAFENIB
     Indication: Hepatic cancer
     Dosage: 120 MG, QD
     Route: 048
     Dates: start: 20220723, end: 20220724
  2. STIVARGA [Suspect]
     Active Substance: REGORAFENIB
     Indication: Chemotherapy

REACTIONS (2)
  - Myelosuppression [Unknown]
  - Off label use [None]

NARRATIVE: CASE EVENT DATE: 20220723
